FAERS Safety Report 25738652 (Version 1)
Quarter: 2025Q3

REPORT INFORMATION
  Report Type: Spontaneous
  Country: US (occurrence: US)
  Receive Date: 20250829
  Receipt Date: 20250829
  Transmission Date: 20251021
  Serious: No
  Sender: MDD OPERATIONS
  Company Number: US-MDD US Operations-MDD202507-002461

PATIENT
  Age: 70 Year
  Sex: Male

DRUGS (1)
  1. ONAPGO [Suspect]
     Active Substance: APOMORPHINE HYDROCHLORIDE
     Indication: Parkinson^s disease
     Dosage: FOR 16 HOURS CONTINUOUS INFUSION
     Dates: start: 20250701

REACTIONS (3)
  - Infusion site haemorrhage [Unknown]
  - Product leakage [Unknown]
  - Device issue [Unknown]

NARRATIVE: CASE EVENT DATE: 20250701
